FAERS Safety Report 18376569 (Version 1)
Quarter: 2020Q4

REPORT INFORMATION
  Report Type: Other
  Country: TR (occurrence: TR)
  Receive Date: 20201013
  Receipt Date: 20201013
  Transmission Date: 20210114
  Serious: Yes (Other)
  Sender: FDA-Public Use
  Company Number: TR-FDC LIMITED-2092700

PATIENT
  Age: 68 Year
  Sex: Female

DRUGS (5)
  1. VEMURAFENIB. [Concomitant]
     Active Substance: VEMURAFENIB
     Route: 065
  2. ESCITALOPRAM [Concomitant]
     Active Substance: ESCITALOPRAM OXALATE
     Route: 065
  3. MIRTAZAPINE. [Concomitant]
     Active Substance: MIRTAZAPINE
     Route: 065
  4. COBIMETINIB. [Concomitant]
     Active Substance: COBIMETINIB
     Route: 065
  5. CIPROFLOXACIN. [Suspect]
     Active Substance: CIPROFLOXACIN
     Indication: CHOLECYSTITIS INFECTIVE
     Route: 065

REACTIONS (1)
  - Syncope [Unknown]
